FAERS Safety Report 11395012 (Version 1)
Quarter: 2015Q3

REPORT INFORMATION
  Report Type: Spontaneous
  Country: US (occurrence: None)
  Receive Date: 20150817
  Receipt Date: 20150817
  Transmission Date: 20151125
  Serious: Yes (Hospitalization)
  Sender: FDA-Public Use
  Company Number: None

PATIENT
  Age: 60 Year
  Sex: Male
  Weight: 89.7 kg

DRUGS (8)
  1. HARVONI [Suspect]
     Active Substance: LEDIPASVIR\SOFOSBUVIR
     Indication: HEPATITIS C
     Dosage: 1 PILL QD ORAL
     Route: 048
  2. AMMONIUM LACTATE. [Concomitant]
     Active Substance: AMMONIUM LACTATE
  3. METOPROLOL [Concomitant]
     Active Substance: METOPROLOL
  4. ASA [Concomitant]
     Active Substance: ASPIRIN
  5. LANTUS [Concomitant]
     Active Substance: INSULIN GLARGINE
  6. LASIX [Concomitant]
     Active Substance: FUROSEMIDE
  7. LOSARTAN. [Concomitant]
     Active Substance: LOSARTAN
  8. NEURONTIN [Concomitant]
     Active Substance: GABAPENTIN

REACTIONS (1)
  - Paracentesis [None]

NARRATIVE: CASE EVENT DATE: 20150807
